FAERS Safety Report 9440454 (Version 1)
Quarter: 2013Q3

REPORT INFORMATION
  Report Type: Spontaneous
  Country: IT (occurrence: IT)
  Receive Date: 20130805
  Receipt Date: 20130805
  Transmission Date: 20140515
  Serious: Yes (Hospitalization)
  Sender: FDA-Public Use
  Company Number: PHHY2013IT081918

PATIENT
  Age: 80 Year
  Sex: Male

DRUGS (3)
  1. FUROSEMIDE [Suspect]
     Indication: OEDEMA
     Dosage: 50 MG, QD
     Route: 048
     Dates: start: 20130629, end: 20130630
  2. CARDICOR [Concomitant]
  3. ZOPRANOL [Concomitant]

REACTIONS (1)
  - Syncope [Recovered/Resolved]
